APPROVED DRUG PRODUCT: OLOPATADINE HYDROCHLORIDE
Active Ingredient: OLOPATADINE HYDROCHLORIDE
Strength: EQ 0.2% BASE
Dosage Form/Route: SOLUTION/DROPS;OPHTHALMIC
Application: A217051 | Product #001
Applicant: FDC LTD
Approved: Jul 14, 2025 | RLD: No | RS: No | Type: OTC